FAERS Safety Report 7876504-6 (Version None)
Quarter: 2011Q4

REPORT INFORMATION
  Report Type: 
  Country: None (occurrence: None)
  Receive Date: 20111031
  Receipt Date: 20111018
  Transmission Date: 20120403
  Serious: Yes (Other)
  Sender: FDA-Public Use
  Company Number: ES-CELGENEUS-144-50794-11102050

PATIENT

DRUGS (1)
  1. VIDAZA [Suspect]
     Dosage: UNKNOWN
     Route: 065
     Dates: start: 20020101, end: 20110101

REACTIONS (6)
  - GASTROINTESTINAL TOXICITY [None]
  - FEBRILE NEUTROPENIA [None]
  - ACUTE MYELOID LEUKAEMIA [None]
  - MALAISE [None]
  - INJECTION SITE DISCOMFORT [None]
  - NO THERAPEUTIC RESPONSE [None]
